FAERS Safety Report 4526840-6 (Version None)
Quarter: 2004Q4

REPORT INFORMATION
  Report Type: 
  Country: None (occurrence: None)
  Receive Date: 20041213
  Receipt Date: 20041129
  Transmission Date: 20050328
  Serious: Yes (Other)
  Sender: FDA-Public Use
  Company Number: 2004103944

PATIENT
  Age: 43 Year
  Sex: Male

DRUGS (6)
  1. ATORVASTATIN (ATORVASTATIN) [Suspect]
     Indication: HYPERCHOLESTEROLAEMIA
     Dosage: 10 MG (10 MG, 1 IN 1 D), ORAL
     Route: 048
     Dates: start: 19990101
  2. CALCIPOTRIOL (CALCIPOTRIOL) [Suspect]
     Indication: PSORIASIS
     Dosage: TOPICAL
     Route: 061
     Dates: start: 19950101
  3. DIGOXIN [Concomitant]
  4. BETAMETHASONE (BETAMETASONE) [Concomitant]
  5. NICOTINE RESIN (NICOTINE RESIN) [Concomitant]
  6. PAROXETINE HCL [Concomitant]

REACTIONS (2)
  - BLOOD BILIRUBIN INCREASED [None]
  - BLOOD POTASSIUM INCREASED [None]
